FAERS Safety Report 6949154-3 (Version None)
Quarter: 2010Q3

REPORT INFORMATION
  Report Type: 
  Country: None (occurrence: None)
  Receive Date: 20100828
  Receipt Date: 20091207
  Transmission Date: 20110219
  Serious: No
  Sender: FDA-Public Use
  Company Number: US-ABBOTT-09P-163-0613471-00

PATIENT
  Sex: Male
  Weight: 136.2 kg

DRUGS (2)
  1. NIASPAN [Suspect]
     Indication: BLOOD TRIGLYCERIDES INCREASED
     Dates: start: 20091201
  2. METFORMIN [Concomitant]
     Indication: DIABETES MELLITUS

REACTIONS (6)
  - ASTHENIA [None]
  - CARDIAC DISORDER [None]
  - DRY MOUTH [None]
  - MOBILITY DECREASED [None]
  - SLUGGISHNESS [None]
  - URINARY INCONTINENCE [None]
